FAERS Safety Report 14987464 (Version 1)
Quarter: 2018Q2

REPORT INFORMATION
  Report Type: Spontaneous
  Country: US (occurrence: US)
  Receive Date: 20180518
  Receipt Date: 20180518
  Transmission Date: 20180711
  Serious: Yes (Disabling, Other)
  Sender: FDA-Public Use
  Company Number: None

PATIENT
  Age: 50 Year
  Sex: Female
  Weight: 101.25 kg

DRUGS (2)
  1. XANAX [Concomitant]
     Active Substance: ALPRAZOLAM
  2. ALPRAZOLAM. [Suspect]
     Active Substance: ALPRAZOLAM
     Indication: PANIC ATTACK
     Dosage: ?          QUANTITY:90 TABLET(S);?
     Route: 048

REACTIONS (9)
  - Marital problem [None]
  - Quality of life decreased [None]
  - Emotional disorder [None]
  - Social problem [None]
  - Drug tolerance [None]
  - Anger [None]
  - Withdrawal syndrome [None]
  - Memory impairment [None]
  - Panic attack [None]

NARRATIVE: CASE EVENT DATE: 20180222
